FAERS Safety Report 5234453-6 (Version None)
Quarter: 2007Q1

REPORT INFORMATION
  Report Type: 
  Country: None (occurrence: None)
  Receive Date: 20070209
  Receipt Date: 20070201
  Transmission Date: 20070707
  Serious: Yes (Life-Threatening)
  Sender: FDA-Public Use
  Company Number: JP-JPN-A200605535

PATIENT
  Sex: Female

DRUGS (2)
  1. PAXIL [Suspect]
     Dosage: 10MG TWICE PER DAY
  2. ETIZOLAM [Suspect]
     Dates: start: 20030324

REACTIONS (9)
  - ABDOMINAL DISCOMFORT [None]
  - DECREASED ACTIVITY [None]
  - DRUG EXPOSURE DURING PREGNANCY [None]
  - DRUG WITHDRAWAL SYNDROME NEONATAL [None]
  - HYPOTONIA [None]
  - IRRITABILITY [None]
  - NEONATAL ASPHYXIA [None]
  - NEONATAL RESPIRATORY ARREST [None]
  - RESPIRATORY DISORDER NEONATAL [None]
